FAERS Safety Report 10027458 (Version 5)
Quarter: 2015Q2

REPORT INFORMATION
  Report Type: Spontaneous
  Country: US (occurrence: US)
  Receive Date: 20140321
  Receipt Date: 20150505
  Transmission Date: 20150821
  Serious: Yes (Other)
  Sender: FDA-Public Use
  Company Number: US-PFIZER INC-2013307603

PATIENT
  Age: 82 Year
  Sex: Female
  Weight: 66 kg

DRUGS (16)
  1. TYLENOL [Concomitant]
     Active Substance: ACETAMINOPHEN
     Dosage: 500 MG, AS NEEDED
  2. ASPIRIN. [Concomitant]
     Active Substance: ASPIRIN
     Dosage: 325 MG, 1X/DAY
  3. LISINOPRIL. [Concomitant]
     Active Substance: LISINOPRIL
     Dosage: 20 MG, DAILY
  4. DIGOXIN. [Concomitant]
     Active Substance: DIGOXIN
     Indication: CARDIAC DISORDER
     Dosage: 125 UG, DAILY
  5. LYRICA [Suspect]
     Active Substance: PREGABALIN
     Indication: HYPOAESTHESIA
     Dosage: 100 MG, 3X/DAY
     Route: 048
     Dates: start: 2006
  6. TYLENOL [Concomitant]
     Active Substance: ACETAMINOPHEN
     Indication: PAIN
     Dosage: 1000MG (2 X 500MG) IN MORNING AND 1500MG (3 X 500MG) AT NIGHT
  7. ASPIRIN. [Concomitant]
     Active Substance: ASPIRIN
     Indication: ANTICOAGULANT THERAPY
     Dosage: 625 MG, DAILY
  8. TRILIPIX [Concomitant]
     Active Substance: FENOFIBRIC ACID
     Dosage: 135 MG, 1X/DAY
  9. METOPROLOL [Concomitant]
     Active Substance: METOPROLOL
     Dosage: 50 MG, 1X/DAY
  10. TRAZODONE [Concomitant]
     Active Substance: TRAZODONE HYDROCHLORIDE
     Dosage: 50 MG, DAILY
  11. LYRICA [Suspect]
     Active Substance: PREGABALIN
     Indication: NEUROPATHY PERIPHERAL
     Dosage: 100 MG, 4X/DAY
     Route: 048
     Dates: start: 201309
  12. METOPROLOL TARTRATE. [Concomitant]
     Active Substance: METOPROLOL TARTRATE
     Dosage: 50 MG, 2X/DAY
  13. OMEGA-3 ACIDS [Concomitant]
     Active Substance: OMEGA-3 FATTY ACIDS
     Dosage: UNK, 2X/DAY
  14. LYRICA [Suspect]
     Active Substance: PREGABALIN
     Indication: ANKLE OPERATION
     Dosage: 100 MG, 3X/DAY
     Route: 048
     Dates: end: 201403
  15. LABETALOL [Concomitant]
     Active Substance: LABETALOL\LABETALOL HYDROCHLORIDE
     Dosage: 300 MG, 2X/DAY
  16. LABETALOL [Concomitant]
     Active Substance: LABETALOL\LABETALOL HYDROCHLORIDE
     Dosage: 200 MG, 1X/DAY

REACTIONS (13)
  - Body temperature fluctuation [Recovered/Resolved]
  - Pain [Recovered/Resolved]
  - Pain in extremity [Recovered/Resolved]
  - Neuropathy peripheral [Unknown]
  - Aphonia [Recovered/Resolved]
  - Thinking abnormal [Recovered/Resolved]
  - Intentional product use issue [Unknown]
  - Drug withdrawal syndrome [Recovered/Resolved]
  - Amnesia [Recovered/Resolved]
  - Feeling abnormal [Recovered/Resolved]
  - Hyperhidrosis [Recovered/Resolved]
  - Malaise [Recovered/Resolved]
  - Blood disorder [Unknown]

NARRATIVE: CASE EVENT DATE: 201309
